FAERS Safety Report 9161686 (Version 1)
Quarter: 2013Q1

REPORT INFORMATION
  Report Type: Report from Study
  Country: US (occurrence: US)
  Receive Date: 20130314
  Receipt Date: 20130314
  Transmission Date: 20140127
  Serious: No
  Sender: FDA-Public Use
  Company Number: US-009507513-1303USA006588

PATIENT
  Sex: Male

DRUGS (3)
  1. BOCEPREVIR [Suspect]
     Indication: HEPATITIS C
  2. RIBAVIRIN [Suspect]
     Indication: HEPATITIS C
     Dosage: 1200 MG QD DIVIDED DOSES
     Route: 048
     Dates: start: 20110916
  3. PEGASYS [Suspect]
     Indication: HEPATITIS C
     Dosage: 1800 MICROGRAMS UNK
     Route: 058
     Dates: start: 20110916

REACTIONS (2)
  - Weight decreased [Unknown]
  - Asthenia [Unknown]
